FAERS Safety Report 20503825 (Version 1)
Quarter: 2022Q1

REPORT INFORMATION
  Report Type: Spontaneous
  Country: US (occurrence: US)
  Receive Date: 20220222
  Receipt Date: 20220222
  Transmission Date: 20220423
  Serious: Yes (Death, Hospitalization)
  Sender: FDA-Public Use
  Company Number: US-PFIZER INC-202200257325

PATIENT
  Age: 83 Year
  Sex: Female

DRUGS (1)
  1. VERAPAMIL HCL [Suspect]
     Active Substance: VERAPAMIL HYDROCHLORIDE
     Dosage: UNK (INGESTION) EXTENDED RELEASE
     Route: 048

REACTIONS (2)
  - Medication error [Fatal]
  - Death [Fatal]

NARRATIVE: CASE EVENT DATE: 20200101
